FAERS Safety Report 21120316 (Version 8)
Quarter: 2023Q1

REPORT INFORMATION
  Report Type: Spontaneous
  Country: CA (occurrence: CA)
  Receive Date: 20220722
  Receipt Date: 20230110
  Transmission Date: 20230418
  Serious: No
  Sender: FDA-Public Use
  Company Number: CA-CELLTRION INC.-2022CA011519

PATIENT

DRUGS (10)
  1. INFLECTRA [Suspect]
     Active Substance: INFLIXIMAB-DYYB
     Indication: Rheumatoid arthritis
     Dosage: 400 MG EVERY 6 WEEKS
     Route: 042
     Dates: start: 20220608
  2. INFLECTRA [Suspect]
     Active Substance: INFLIXIMAB-DYYB
     Dosage: 400 MG EVERY 6 WEEKS
     Route: 042
     Dates: start: 20221012
  3. BACLOFEN [Concomitant]
     Active Substance: BACLOFEN
     Dosage: 1 DF
     Route: 065
  4. CYMBALTA [Concomitant]
     Active Substance: DULOXETINE HYDROCHLORIDE
     Dosage: 1 DF
     Route: 065
  5. FOLIC ACID [Concomitant]
     Active Substance: FOLIC ACID
     Dosage: 1 DF
     Dates: start: 2007
  6. METHOTREXATE [Concomitant]
     Active Substance: METHOTREXATE
     Dosage: UNK
     Route: 065
  7. METHOTREXATE [Concomitant]
     Active Substance: METHOTREXATE
     Dosage: 10 MG, WEEKLY
     Route: 048
     Dates: start: 2007
  8. MELOXICAM [Concomitant]
     Active Substance: MELOXICAM
     Dosage: 1 DF
  9. NALTREXONE [Concomitant]
     Active Substance: NALTREXONE
     Dosage: 1 DF (LD)
  10. RABEPRAZOLE SODIUM [Concomitant]
     Active Substance: RABEPRAZOLE SODIUM
     Dosage: 1 DF

REACTIONS (16)
  - Lower respiratory tract infection [Recovering/Resolving]
  - COVID-19 [Recovering/Resolving]
  - Skin laceration [Recovering/Resolving]
  - Wound infection [Recovering/Resolving]
  - Pain [Not Recovered/Not Resolved]
  - Migraine [Not Recovered/Not Resolved]
  - Nasopharyngitis [Not Recovered/Not Resolved]
  - Nasal congestion [Not Recovered/Not Resolved]
  - Off label use [Unknown]
  - Sinusitis [Recovering/Resolving]
  - Ear infection [Recovering/Resolving]
  - Malaise [Recovering/Resolving]
  - Ear pain [Recovering/Resolving]
  - Rhinitis [Recovering/Resolving]
  - Epistaxis [Recovering/Resolving]
  - Rhinorrhoea [Not Recovered/Not Resolved]

NARRATIVE: CASE EVENT DATE: 20220101
